FAERS Safety Report 9322414 (Version 4)
Quarter: 2013Q3

REPORT INFORMATION
  Report Type: Report from Study
  Country: DE (occurrence: DE)
  Receive Date: 20130531
  Receipt Date: 20130716
  Transmission Date: 20140515
  Serious: Yes (Hospitalization)
  Sender: FDA-Public Use
  Company Number: DE-UCBSA-087249

PATIENT
  Sex: Female
  Weight: 55 kg

DRUGS (18)
  1. CERTOLIZUMAB PEGOL [Suspect]
     Indication: RHEUMATOID ARTHRITIS
     Route: 058
     Dates: start: 20110627, end: 20110815
  2. PREDNISOLONE [Concomitant]
     Indication: RHEUMATOID ARTHRITIS
     Dosage: REDUCTION BY 5 MG PER WEEK UNTIL 10 MG, THEN REDUCTION BY 2.5 TO 5 MG, THEN MAINTENANCE OF THE 5 MG
  3. PREDNISOLONE [Concomitant]
     Indication: RHEUMATOID ARTHRITIS
     Dates: start: 20100607
  4. FOLIC ACID [Concomitant]
  5. HCT [Concomitant]
     Dosage: DOSE : 25
  6. MCP [Concomitant]
     Dosage: DOSE : 10
  7. PANTOZOL [Concomitant]
     Dosage: DOSE : 20
  8. CALCIMAGON D3 [Concomitant]
  9. ACC 600 [Concomitant]
  10. LANTAREL [Concomitant]
  11. QUENSYL [Concomitant]
  12. NOVALGIN [Concomitant]
     Dosage: 40 DROPS
  13. EMSER [Concomitant]
  14. SIFROL [Concomitant]
     Dosage: DOSE : 0.7
  15. METHOTREXATE [Concomitant]
     Indication: RHEUMATOID ARTHRITIS
  16. METHOTREXATE [Concomitant]
     Indication: RHEUMATOID ARTHRITIS
     Dosage: REDUCED TREATMENT
     Dates: start: 2011
  17. METHOTREXATE [Concomitant]
     Indication: RHEUMATOID ARTHRITIS
     Dosage: DOSE: 15 MG, QUANTITY SUFFICIENT (QS)
     Dates: start: 20100708
  18. CELEBREX [Concomitant]
     Indication: RHEUMATOID ARTHRITIS
     Dosage: DOSE: 200 MG, ONCE DAILY, PRN
     Dates: start: 20110103

REACTIONS (3)
  - Bronchitis [Recovered/Resolved]
  - Nausea [Recovered/Resolved]
  - Vomiting [Recovered/Resolved]
